FAERS Safety Report 20095705 (Version 1)
Quarter: 2021Q4

REPORT INFORMATION
  Report Type: Report from Study
  Country: CA (occurrence: CA)
  Receive Date: 20211122
  Receipt Date: 20211122
  Transmission Date: 20220304
  Serious: Yes (Hospitalization)
  Sender: FDA-Public Use
  Company Number: CA-JNJFOC-20211134410

PATIENT
  Age: 57 Year
  Sex: Female
  Weight: 60.5 kg

DRUGS (1)
  1. SIMPONI [Suspect]
     Active Substance: GOLIMUMAB
     Indication: Ankylosing spondylitis
     Dosage: STRENGTH = 50 MG
     Route: 042

REACTIONS (2)
  - Breast reconstruction [Recovered/Resolved]
  - Liposuction [Recovered/Resolved]

NARRATIVE: CASE EVENT DATE: 20211025
